FAERS Safety Report 5517925-6 (Version None)
Quarter: 2007Q4

REPORT INFORMATION
  Report Type: 
  Country: None (occurrence: None)
  Receive Date: 20071107
  Receipt Date: 20070807
  Transmission Date: 20080405
  Serious: Yes (Hospitalization)
  Sender: FDA-Public Use
  Company Number: WAES 0708USA02922

PATIENT
  Age: 41 Year
  Sex: Male

DRUGS (1)
  1. MEVACOR [Suspect]
     Dosage: 60 MG/HS/PO ; PO
     Route: 048
     Dates: start: 20060525

REACTIONS (1)
  - ASTHENIA [None]
